FAERS Safety Report 24277467 (Version 2)
Quarter: 2024Q3

REPORT INFORMATION
  Report Type: Spontaneous
  Country: US (occurrence: US)
  Receive Date: 20240903
  Receipt Date: 20240910
  Transmission Date: 20241016
  Serious: No
  Sender: JOHNSON AND JOHNSON
  Company Number: US-JNJFOC-20240865758

PATIENT
  Age: 59 Year
  Sex: Female

DRUGS (10)
  1. TYLENOL [Suspect]
     Active Substance: ACETAMINOPHEN
     Indication: Headache
     Route: 065
     Dates: start: 202405
  2. TYVASO [Concomitant]
     Active Substance: TREPROSTINIL
     Indication: Pulmonary arterial hypertension
     Dosage: 18 UG, INHALATION, REGIMEN # 1
     Route: 065
     Dates: start: 202405, end: 2024
  3. TYVASO [Concomitant]
     Active Substance: TREPROSTINIL
     Dosage: 24 UG, QID, INHALATION REGIMEN # 2
     Route: 065
     Dates: start: 2024, end: 2024
  4. TYVASO [Concomitant]
     Active Substance: TREPROSTINIL
     Dosage: 30 UG, QID, INHALATION REGIMEN # 3
     Route: 065
     Dates: start: 2024, end: 2024
  5. TYVASO [Concomitant]
     Active Substance: TREPROSTINIL
     Dosage: 48 UG, INHALATION REGIMEN # 4
     Route: 065
     Dates: start: 2024, end: 2024
  6. TYVASO [Concomitant]
     Active Substance: TREPROSTINIL
     Dosage: 54 UG, QID, INHALATION REGIMEN # 5
     Route: 065
     Dates: start: 2024, end: 20240703
  7. TYVASO [Concomitant]
     Active Substance: TREPROSTINIL
     Dosage: 48 UG, QID, INHALATION  REGIMEN # 6
     Route: 065
     Dates: start: 20240703
  8. TYVASO [Concomitant]
     Active Substance: TREPROSTINIL
     Dosage: INHALATION  REGIMEN # 7
     Route: 065
     Dates: start: 202405
  9. OPSUMIT [Concomitant]
     Active Substance: MACITENTAN
     Indication: Product used for unknown indication
     Route: 065
  10. SILDENAFIL CITRATE [Concomitant]
     Active Substance: SILDENAFIL CITRATE
     Indication: Product used for unknown indication
     Route: 065

REACTIONS (1)
  - Drug ineffective [Unknown]

NARRATIVE: CASE EVENT DATE: 20240501
